FAERS Safety Report 21969194 (Version 1)
Quarter: 2023Q1

REPORT INFORMATION
  Report Type: Spontaneous
  Country: US (occurrence: None)
  Receive Date: 20230207
  Receipt Date: 20230207
  Transmission Date: 20230418
  Serious: Yes (unspecified)
  Sender: FDA-Public Use
  Company Number: None

PATIENT
  Age: 47 Year
  Sex: Male

DRUGS (2)
  1. MILK OF MAGNESIA [Suspect]
     Active Substance: MAGNESIUM HYDROXIDE
     Indication: Constipation
     Dates: start: 20220131, end: 20230201
  2. XANAX [Concomitant]
     Active Substance: ALPRAZOLAM

REACTIONS (4)
  - Nausea [None]
  - Decreased appetite [None]
  - Malaise [None]
  - Vomiting [None]

NARRATIVE: CASE EVENT DATE: 20230131
